FAERS Safety Report 18228462 (Version 1)
Quarter: 2020Q3

REPORT INFORMATION
  Report Type: Spontaneous
  Country: FR (occurrence: FR)
  Receive Date: 20200903
  Receipt Date: 20200903
  Transmission Date: 20201103
  Serious: Yes (Hospitalization)
  Sender: FDA-Public Use
  Company Number: FR-TEVA-2020-FR-1822216

PATIENT
  Age: 93 Year
  Sex: Female

DRUGS (10)
  1. FUROSEMIDE. [Concomitant]
     Active Substance: FUROSEMIDE
     Route: 048
  2. BISOPROLOL (HEMIFUMARATE DE) [Concomitant]
     Active Substance: BISOPROLOL FUMARATE
     Route: 048
  3. LANSOYL [Concomitant]
     Active Substance: MINERAL OIL
     Route: 048
  4. DISCOTRINE 5 MG/24 HEURES, DISPOSITIF TRANSDERMIQUE [Concomitant]
     Active Substance: NITROGLYCERIN
     Route: 062
  5. PANTOPRAZOLE [Concomitant]
     Active Substance: PANTOPRAZOLE
     Route: 048
  6. TARDYFERON 80 MG, COMPRIME ENROBE [Concomitant]
     Active Substance: FERROUS SULFATE
     Route: 048
  7. RAMIPRIL. [Suspect]
     Active Substance: RAMIPRIL
     Indication: CARDIAC FAILURE
     Dosage: 1.25MG
     Route: 048
     Dates: start: 20200415, end: 20200425
  8. AMLOR 5 MG, GELULE [Concomitant]
     Active Substance: AMLODIPINE BESYLATE
     Route: 048
  9. DUPHALAC [Concomitant]
     Active Substance: LACTULOSE
     Route: 048
  10. PRAMIPEXOLE (DICHLORHYDRATE DE) MONOHYDRATE [Suspect]
     Active Substance: PRAMIPEXOLE
     Indication: RESTLESS LEGS SYNDROME
     Route: 048
     Dates: start: 20200422, end: 20200425

REACTIONS (1)
  - Pancreatitis acute [Recovered/Resolved]

NARRATIVE: CASE EVENT DATE: 20200424
